FAERS Safety Report 17987280 (Version 1)
Quarter: 2020Q3

REPORT INFORMATION
  Report Type: Spontaneous
  Country: US (occurrence: US)
  Receive Date: 20200707
  Receipt Date: 20200707
  Transmission Date: 20201103
  Serious: Yes (Other)
  Sender: FDA-Public Use
  Company Number: US-ADVANZ PHARMA-202006006723

PATIENT

DRUGS (3)
  1. PREDNISOLONE. [Suspect]
     Active Substance: PREDNISOLONE
     Dosage: RE?INITIATED AT 6 WEEKS
  2. NEPAFENAC [Suspect]
     Active Substance: NEPAFENAC
     Indication: CYSTOID MACULAR OEDEMA
     Dosage: 1 DOSAGE FORM, QID (EVERY 6 HRS IN BOTH EYES)
     Route: 061
  3. PREDNISOLONE. [Suspect]
     Active Substance: PREDNISOLONE
     Indication: CYSTOID MACULAR OEDEMA
     Dosage: 1 DOSAGE FORM, QID (EVERY 6 HOURS)) IN BOTH EYES
     Route: 061

REACTIONS (4)
  - Corneal epithelium defect [Recovered/Resolved with Sequelae]
  - Streptococcal infection [Recovered/Resolved with Sequelae]
  - Corneal infiltrates [Recovered/Resolved with Sequelae]
  - Infectious crystalline keratopathy [Recovered/Resolved with Sequelae]
